FAERS Safety Report 15325582 (Version 3)
Quarter: 2018Q3

REPORT INFORMATION
  Report Type: Report from Study
  Country: US (occurrence: US)
  Receive Date: 20180828
  Receipt Date: 20180912
  Transmission Date: 20181010
  Serious: Yes (Other)
  Sender: FDA-Public Use
  Company Number: US-BAYER-2018-157734

PATIENT
  Age: 73 Year
  Sex: Female

DRUGS (3)
  1. STIVARGA [Suspect]
     Active Substance: REGORAFENIB
     Indication: COLORECTAL CANCER
     Dosage: DAILY DOSE 120 MG FOR 21 DAYS THEN OFF FOR 7 DAYS
     Route: 048
     Dates: start: 20180820
  2. STIVARGA [Suspect]
     Active Substance: REGORAFENIB
     Indication: COLORECTAL CANCER
     Dosage: 40 MG, DAILY
     Route: 048
     Dates: start: 20180810, end: 20180813
  3. STIVARGA [Suspect]
     Active Substance: REGORAFENIB
     Indication: COLORECTAL CANCER
     Dosage: DAILY DOSE 80 MG
     Route: 048
     Dates: start: 20180813, end: 201808

REACTIONS (15)
  - Pyrexia [None]
  - Dehydration [None]
  - White blood cell count increased [None]
  - Off label use [None]
  - Abdominal pain [None]
  - Constipation [None]
  - Vomiting [None]
  - Red blood cells urine [None]
  - Protein urine present [None]
  - Musculoskeletal chest pain [None]
  - Nausea [None]
  - Diarrhoea [None]
  - Infection [None]
  - Fatigue [None]
  - Blood calcium decreased [None]

NARRATIVE: CASE EVENT DATE: 201808
